FAERS Safety Report 4366689-0 (Version None)
Quarter: 2004Q2

REPORT INFORMATION
  Report Type: 
  Country: None (occurrence: None)
  Receive Date: 20040527
  Receipt Date: 20040517
  Transmission Date: 20050107
  Serious: Yes (Hospitalization)
  Sender: FDA-Public Use
  Company Number: FR-BRISTOL-MYERS SQUIBB COMPANY-12588745

PATIENT
  Age: 3 Month
  Sex: Female

DRUGS (5)
  1. MUCOMYST [Suspect]
     Indication: NASOPHARYNGITIS
     Route: 048
     Dates: start: 20040326
  2. MUCOMYST [Suspect]
     Indication: PYREXIA
     Route: 048
     Dates: start: 20040326
  3. RHINOTROPHYL [Suspect]
     Indication: NASOPHARYNGITIS
     Route: 045
     Dates: start: 20040326
  4. RHINOTROPHYL [Suspect]
     Indication: PYREXIA
     Route: 045
     Dates: start: 20040326
  5. DOLIPRANE [Concomitant]
     Dates: start: 20040326

REACTIONS (2)
  - DYSPNOEA [None]
  - NASOPHARYNGITIS [None]
